FAERS Safety Report 19489241 (Version 1)
Quarter: 2021Q3

REPORT INFORMATION
  Report Type: Spontaneous
  Country: TR (occurrence: TR)
  Receive Date: 20210703
  Receipt Date: 20210703
  Transmission Date: 20211014
  Serious: Yes (Other)
  Sender: FDA-Public Use
  Company Number: TR-ACCORD-229900

PATIENT
  Age: 55 Year
  Sex: Female

DRUGS (1)
  1. SERTRALINE [Suspect]
     Active Substance: SERTRALINE HYDROCHLORIDE
     Indication: MAJOR DEPRESSION
     Dosage: DOSE INCREASED

REACTIONS (2)
  - Anal fissure haemorrhage [Recovered/Resolved]
  - Constipation [Recovered/Resolved]
